FAERS Safety Report 6220993-X (Version None)
Quarter: 2009Q2

REPORT INFORMATION
  Report Type: 
  Country: None (occurrence: None)
  Receive Date: 20090608
  Receipt Date: 20090525
  Transmission Date: 20091009
  Serious: Yes (Hospitalization)
  Sender: FDA-Public Use
  Company Number: 8047109

PATIENT
  Sex: Male

DRUGS (4)
  1. KEPPRA [Suspect]
  2. KEPPRA [Suspect]
     Dosage: 3000 MG ONCE
  3. LAMOTRIGINE [Suspect]
  4. LAMOTRIGINE [Suspect]
     Dosage: 600 MG ONCE

REACTIONS (3)
  - ACCIDENTAL OVERDOSE [None]
  - DRUG TOXICITY [None]
  - SOMNOLENCE [None]
